FAERS Safety Report 10050013 (Version 1)
Quarter: 2014Q2

REPORT INFORMATION
  Report Type: Spontaneous
  Country: CH (occurrence: CH)
  Receive Date: 20140401
  Receipt Date: 20140401
  Transmission Date: 20141212
  Serious: Yes (Hospitalization)
  Sender: FDA-Public Use
  Company Number: CH-SA-2014SA035331

PATIENT
  Age: 92 Year
  Sex: Female

DRUGS (7)
  1. CLEXANE [Suspect]
     Indication: PRODUCT USED FOR UNKNOWN INDICATION
     Dosage: STRENGTH: 40MG/0.4ML
     Route: 065
     Dates: start: 201401
  2. ASPIRIN [Suspect]
     Indication: PRODUCT USED FOR UNKNOWN INDICATION
     Route: 048
     Dates: start: 20140205
  3. TOREM [Concomitant]
  4. EXFORGE [Concomitant]
  5. DAFALGAN [Concomitant]
  6. DILATREND [Concomitant]
  7. EXFORGE [Concomitant]

REACTIONS (4)
  - Presyncope [Recovered/Resolved]
  - Gastrointestinal haemorrhage [Recovered/Resolved]
  - Melaena [Recovered/Resolved]
  - Haemorrhagic anaemia [Not Recovered/Not Resolved]
